FAERS Safety Report 7986852-7 (Version None)
Quarter: 2011Q4

REPORT INFORMATION
  Report Type: 
  Country: None (occurrence: None)
  Receive Date: 20111216
  Receipt Date: 20110913
  Transmission Date: 20120403
  Serious: No
  Sender: FDA-Public Use
  Company Number: US-BRISTOL-MYERS SQUIBB COMPANY-15575152

PATIENT
  Age: 10 Year
  Sex: Female
  Weight: 47 kg

DRUGS (1)
  1. ABILIFY [Suspect]
     Indication: POST-TRAUMATIC STRESS DISORDER
     Dosage: THERAPY START FROM 13AUG10
     Route: 048
     Dates: start: 20100813

REACTIONS (4)
  - SEDATION [None]
  - MUSCLE SPASMS [None]
  - NAUSEA [None]
  - WEIGHT INCREASED [None]
